FAERS Safety Report 4304074-8 (Version None)
Quarter: 2004Q1

REPORT INFORMATION
  Report Type: 
  Country: None (occurrence: None)
  Receive Date: 20040224
  Receipt Date: 20040216
  Transmission Date: 20041129
  Serious: Yes (Other)
  Sender: FDA-Public Use
  Company Number: 200311228BVD

PATIENT
  Age: 64 Year
  Sex: Male
  Weight: 90 kg

DRUGS (1)
  1. LEVITRA [Suspect]
     Indication: ERECTILE DYSFUNCTION
     Dosage: PRN, ORAL
     Route: 048
     Dates: start: 20031111

REACTIONS (1)
  - HYPERTENSIVE CRISIS [None]
